FAERS Safety Report 6182447-9 (Version None)
Quarter: 2009Q2

REPORT INFORMATION
  Report Type: 
  Country: None (occurrence: None)
  Receive Date: 20090507
  Receipt Date: 20090428
  Transmission Date: 20091009
  Serious: Yes (Other)
  Sender: FDA-Public Use
  Company Number: GB-ROCHE-619018

PATIENT
  Sex: Female
  Weight: 57.2 kg

DRUGS (2)
  1. ROACCUTANE [Suspect]
     Route: 065
     Dates: start: 20090218, end: 20090225
  2. ROACCUTANE [Suspect]
     Route: 065

REACTIONS (1)
  - ABORTION SPONTANEOUS [None]
